FAERS Safety Report 15533656 (Version 2)
Quarter: 2018Q4

REPORT INFORMATION
  Report Type: Spontaneous
  Country: FR (occurrence: FR)
  Receive Date: 20181019
  Receipt Date: 20181217
  Transmission Date: 20190205
  Serious: Yes (Hospitalization)
  Sender: FDA-Public Use
  Company Number: FR-PFIZER INC-2018418368

PATIENT
  Age: 70 Year
  Sex: Female
  Weight: 57 kg

DRUGS (10)
  1. ZAVEDOS [Suspect]
     Active Substance: IDARUBICIN
     Indication: ACUTE MYELOID LEUKAEMIA
     Dosage: 13.7 MG, 1X/DAY
     Route: 042
     Dates: start: 20180802, end: 20180806
  2. VANCOMYCINE [VANCOMYCIN HYDROCHLORIDE] [Suspect]
     Active Substance: VANCOMYCIN HYDROCHLORIDE
     Indication: ACUTE MYELOID LEUKAEMIA
     Dosage: 1 DF, 1X/DAY
     Route: 042
     Dates: start: 20180817, end: 20180820
  3. GRANOCYTE [Suspect]
     Active Substance: LENOGRASTIM
     Indication: PROPHYLAXIS
     Dosage: 39.8 MILLION IU, SINGLE
     Route: 058
     Dates: start: 20180809, end: 20180809
  4. AMIKACINE [AMIKACIN] [Suspect]
     Active Substance: AMIKACIN
     Indication: ACUTE MYELOID LEUKAEMIA
     Dosage: 1 DF, SINGLE
     Route: 042
     Dates: start: 20180804, end: 20180804
  5. BACTRIM [Suspect]
     Active Substance: SULFAMETHOXAZOLE\TRIMETHOPRIM
     Indication: ACUTE MYELOID LEUKAEMIA
     Dosage: 1 DF, 1X/DAY
     Route: 048
     Dates: start: 20180808, end: 20180830
  6. ZELITREX [Suspect]
     Active Substance: VALACYCLOVIR HYDROCHLORIDE
     Indication: ACUTE MYELOID LEUKAEMIA
     Dosage: 500 MG, 1X/DAY
     Route: 048
     Dates: start: 20180808, end: 20180830
  7. AXEPIM [Suspect]
     Active Substance: CEFEPIME HYDROCHLORIDE
     Indication: ACUTE MYELOID LEUKAEMIA
     Dosage: 1 DF, 1X/DAY
     Route: 042
     Dates: start: 20180802, end: 20180823
  8. BELUSTINE [Suspect]
     Active Substance: LOMUSTINE
     Indication: ACUTE MYELOID LEUKAEMIA
     Dosage: 1 DF, CYCLIC
     Route: 048
     Dates: start: 20180802, end: 20180802
  9. NOXAFIL [Suspect]
     Active Substance: POSACONAZOLE
     Indication: ACUTE MYELOID LEUKAEMIA
     Dosage: 300 MG, 1X/DAY
     Route: 048
     Dates: start: 20180809, end: 20180823
  10. ARACYTINE [Suspect]
     Active Substance: CYTARABINE
     Indication: ACUTE MYELOID LEUKAEMIA
     Dosage: 40 MG, 1DF, 1X/DAY
     Route: 042
     Dates: start: 20180801, end: 20180808

REACTIONS (1)
  - Toxic epidermal necrolysis [Recovering/Resolving]

NARRATIVE: CASE EVENT DATE: 20180817
